FAERS Safety Report 4936760-0 (Version None)
Quarter: 2006Q1

REPORT INFORMATION
  Report Type: 
  Country: None (occurrence: None)
  Receive Date: 20060302
  Receipt Date: 20060220
  Transmission Date: 20060701
  Serious: Yes (Other)
  Sender: FDA-Public Use
  Company Number: GXKR2006IE1015

PATIENT
  Age: 30 Year
  Sex: Female
  Weight: 60 kg

DRUGS (2)
  1. CEFUROXIME [Suspect]
     Indication: POST PROCEDURAL CELLULITIS
     Dosage: 250 MG, BID, ORAL
     Route: 048
     Dates: start: 20060206, end: 20060206
  2. TRADOL (TRAMADOL HYDROCHLORIDE) [Concomitant]

REACTIONS (2)
  - PHARYNGEAL OEDEMA [None]
  - SWOLLEN TONGUE [None]
